FAERS Safety Report 22160325 (Version 1)
Quarter: 2023Q1

REPORT INFORMATION
  Report Type: Spontaneous
  Country: US (occurrence: None)
  Receive Date: 20230330
  Receipt Date: 20230330
  Transmission Date: 20230418
  Serious: Yes (Hospitalization)
  Sender: FDA-Public Use
  Company Number: None

PATIENT
  Age: 75 Year
  Sex: Male
  Weight: 114.76 kg

DRUGS (40)
  1. BEXAROTENE [Suspect]
     Active Substance: BEXAROTENE
     Dosage: FREQUENCY : DAILY;?
     Route: 048
  2. ALBUTEROL [Concomitant]
     Active Substance: ALBUTEROL
  3. ATORVASTATIN [Concomitant]
     Active Substance: ATORVASTATIN
  4. BENZOYL PEROXIDE [Concomitant]
     Active Substance: BENZOYL PEROXIDE
  5. BRILINTA [Concomitant]
     Active Substance: TICAGRELOR
  6. CALCIUM CARBONATE [Concomitant]
     Active Substance: CALCIUM CARBONATE
  7. CALCIUM\CHOLECALCIFEROL [Concomitant]
     Active Substance: CALCIUM\CHOLECALCIFEROL
  8. CITALOPRAM [Concomitant]
     Active Substance: CITALOPRAM HYDROBROMIDE
  9. CLOBETASOL [Concomitant]
     Active Substance: CLOBETASOL
  10. DILTIAZEM [Concomitant]
     Active Substance: DILTIAZEM
  11. ATROPINE\DIPHENOXYLATE [Concomitant]
     Active Substance: ATROPINE\DIPHENOXYLATE
  12. DOCUSATE [Concomitant]
     Active Substance: DOCUSATE
  13. DULOXETINE [Concomitant]
     Active Substance: DULOXETINE
  14. ELIQUIS [Concomitant]
     Active Substance: APIXABAN
  15. FENOFIBRATE [Concomitant]
     Active Substance: FENOFIBRATE
  16. FUROSEMIDE [Concomitant]
     Active Substance: FUROSEMIDE
  17. HEPARIN [Concomitant]
     Active Substance: HEPARIN SODIUM
  18. HUMALOG [Concomitant]
     Active Substance: INSULIN LISPRO
  19. HYDRALAZINE [Concomitant]
     Active Substance: HYDRALAZINE HYDROCHLORIDE
  20. HYDROCHLOROTHIAZIDE [Concomitant]
     Active Substance: HYDROCHLOROTHIAZIDE
  21. HYDROCORTISONE [Concomitant]
     Active Substance: HYDROCORTISONE
  22. HYDROXYZINE [Concomitant]
     Active Substance: HYDROXYZINE HYDROCHLORIDE
  23. INTERFERON ALFA-2B [Concomitant]
     Active Substance: INTERFERON ALFA-2B
  24. JANUVIA [Concomitant]
     Active Substance: SITAGLIPTIN PHOSPHATE
  25. LIDOCAINE\PRILOCAINE [Concomitant]
     Active Substance: LIDOCAINE\PRILOCAINE
  26. LOPERAMIDE [Concomitant]
     Active Substance: LOPERAMIDE
  27. LORATADINE [Concomitant]
     Active Substance: LORATADINE
  28. MAGNESIUM OXIDE [Concomitant]
     Active Substance: MAGNESIUM OXIDE
  29. NEURIVA [Concomitant]
  30. SODIUM CHLORIDE [Concomitant]
     Active Substance: SODIUM CHLORIDE
  31. NOVOLIN NOS [Concomitant]
     Active Substance: INSULIN HUMAN
  32. PERCOCET [Concomitant]
     Active Substance: ACETAMINOPHEN\OXYCODONE HYDROCHLORIDE
  33. PREGABALIN [Concomitant]
     Active Substance: PREGABALIN
  34. TAMSULOSIN [Concomitant]
     Active Substance: TAMSULOSIN
  35. TRADJENTA [Concomitant]
     Active Substance: LINAGLIPTIN
  36. TRAZODONE [Concomitant]
     Active Substance: TRAZODONE HYDROCHLORIDE
  37. TRIAMCINOLONE [Concomitant]
     Active Substance: TRIAMCINOLONE
  38. VALCHLOR [Concomitant]
     Active Substance: MECHLORETHAMINE
  39. VITAMIN B2 [Concomitant]
     Active Substance: RIBOFLAVIN
  40. ZOLINZA [Concomitant]
     Active Substance: VORINOSTAT

REACTIONS (1)
  - Hospitalisation [None]
